FAERS Safety Report 5525404-5 (Version None)
Quarter: 2007Q4

REPORT INFORMATION
  Report Type: 
  Country: None (occurrence: None)
  Receive Date: 20071120
  Receipt Date: 20050105
  Transmission Date: 20080405
  Serious: No
  Sender: FDA-Public Use
  Company Number: 20074255

PATIENT
  Sex: Male

DRUGS (1)
  1. LIORESAL [Suspect]
     Indication: MUSCLE SPASTICITY
     Dosage: MCG, DAILY, INTRATHECAL
     Route: 037

REACTIONS (4)
  - DEVICE RELATED INFECTION [None]
  - DISEASE PROGRESSION [None]
  - SCOLIOSIS [None]
  - STAPHYLOCOCCAL INFECTION [None]
